FAERS Safety Report 6373811-3 (Version None)
Quarter: 2009Q3

REPORT INFORMATION
  Report Type: 
  Country: None (occurrence: None)
  Receive Date: 20090924
  Receipt Date: 20090611
  Transmission Date: 20100115
  Serious: Yes (Other)
  Sender: FDA-Public Use
  Company Number: US-ASTRAZENECA-2009UW15085

PATIENT
  Age: 14 Year
  Sex: Female

DRUGS (2)
  1. SEROQUEL [Suspect]
     Dosage: 50 MG AM, 200 MG AT NIGHT
     Route: 048
  2. ORAL CONTRACEPTIVE [Concomitant]

REACTIONS (1)
  - HYPOTHYROIDISM [None]
